FAERS Safety Report 10244714 (Version 1)
Quarter: 2014Q2

REPORT INFORMATION
  Report Type: Spontaneous
  Country: US (occurrence: US)
  Receive Date: 20140618
  Receipt Date: 20140618
  Transmission Date: 20141212
  Serious: Yes (Other)
  Sender: FDA-Public Use
  Company Number: US-AMGEN-USASP2014044200

PATIENT
  Sex: Female

DRUGS (3)
  1. XGEVA [Suspect]
     Indication: METASTASES TO BONE
     Route: 065
  2. TAMOXIFEN [Concomitant]
  3. FASLODEX                           /01285001/ [Concomitant]

REACTIONS (2)
  - Spinal disorder [Unknown]
  - Drug ineffective [Unknown]
